FAERS Safety Report 5054363-7 (Version None)
Quarter: 2006Q2

REPORT INFORMATION
  Report Type: 
  Country: None (occurrence: None)
  Receive Date: 20060616
  Receipt Date: 20060509
  Transmission Date: 20061013
  Serious: No
  Sender: FDA-Public Use
  Company Number: 224868

PATIENT
  Age: 61 Year
  Sex: Male
  Weight: 59 kg

DRUGS (4)
  1. AVASTIN [Suspect]
     Indication: LUNG NEOPLASM MALIGNANT
     Dosage: 1000 MG, Q3W, INTRAVENOUS
     Route: 042
  2. TAXOL [Concomitant]
  3. CARBOPLATIN [Concomitant]
  4. RADIATION THERAPY (RADIATION THERAPY) [Concomitant]

REACTIONS (1)
  - TRACHEO-OESOPHAGEAL FISTULA [None]
